FAERS Safety Report 5570114-1 (Version None)
Quarter: 2007Q4

REPORT INFORMATION
  Report Type: 
  Country: None (occurrence: None)
  Receive Date: 20071217
  Receipt Date: 20071203
  Transmission Date: 20080405
  Serious: Yes (Life-Threatening, Hospitalization)
  Sender: FDA-Public Use
  Company Number: 2006-01672

PATIENT
  Age: 61 Year
  Sex: Female

DRUGS (1)
  1. VELCADE [Suspect]
     Indication: MULTIPLE MYELOMA
     Dosage: 1:30 MG/M2
     Dates: start: 20060327, end: 20060612

REACTIONS (2)
  - PHLEBITIS [None]
  - PULMONARY EMBOLISM [None]
